FAERS Safety Report 12368471 (Version 1)
Quarter: 2016Q2

REPORT INFORMATION
  Report Type: Spontaneous
  Country: US (occurrence: US)
  Receive Date: 20160513
  Receipt Date: 20160513
  Transmission Date: 20160815
  Serious: No
  Sender: FDA-Public Use
  Company Number: US-PFIZER INC-2016231927

PATIENT
  Sex: Male

DRUGS (3)
  1. VIAGRA [Suspect]
     Active Substance: SILDENAFIL CITRATE
  2. CIALIS [Suspect]
     Active Substance: TADALAFIL
  3. TEMAZEPAM. [Suspect]
     Active Substance: TEMAZEPAM

REACTIONS (1)
  - Headache [Unknown]
